FAERS Safety Report 10563538 (Version 5)
Quarter: 2017Q4

REPORT INFORMATION
  Report Type: Spontaneous
  Country: US (occurrence: US)
  Receive Date: 20141104
  Receipt Date: 20171121
  Transmission Date: 20180320
  Serious: Yes (Hospitalization, Disabling, Other)
  Sender: FDA-Public Use
  Company Number: US-009507513-1411USA000509

PATIENT
  Sex: Female

DRUGS (9)
  1. PREDNISOLONE. [Concomitant]
     Active Substance: PREDNISOLONE
     Indication: JUVENILE IDIOPATHIC ARTHRITIS
     Dosage: UNK UNK, UNKNOWN
     Route: 065
     Dates: start: 1995
  2. CALCIUM (UNSPECIFIED) (+) VITAMIN D (UNSPECIFIED) [Concomitant]
     Active Substance: CALCIUM CARBONATE\VITAMIN D
     Indication: PRODUCT USED FOR UNKNOWN INDICATION
     Dosage: 500MG10MCG, QD
     Route: 065
  3. PAXIL [Concomitant]
     Active Substance: PAROXETINE HYDROCHLORIDE
     Indication: MAJOR DEPRESSION
     Dosage: UNK UNK, UNKNOWN
     Route: 065
     Dates: start: 1995
  4. FELDENE [Concomitant]
     Active Substance: PIROXICAM
     Indication: JUVENILE IDIOPATHIC ARTHRITIS
     Dosage: UNK UNK, UNKNOWN
     Route: 065
     Dates: start: 1995
  5. ENBREL [Concomitant]
     Active Substance: ETANERCEPT
     Indication: JUVENILE IDIOPATHIC ARTHRITIS
     Dosage: UNK, UNKNOWN
     Route: 065
     Dates: start: 1998, end: 200811
  6. VITAMIN D [Concomitant]
     Active Substance: CHOLECALCIFEROL
     Indication: PRODUCT USED FOR UNKNOWN INDICATION
     Dosage: UNK, UNKNOWN
     Route: 065
  7. FOSAMAX [Suspect]
     Active Substance: ALENDRONATE SODIUM
     Indication: OSTEOPOROSIS
     Dosage: 10 MG, QD
     Route: 048
     Dates: start: 199811, end: 200006
  8. VITAMINS (UNSPECIFIED) [Concomitant]
     Active Substance: VITAMINS
     Indication: PRODUCT USED FOR UNKNOWN INDICATION
     Dosage: UNK UNK, UNKNOWN
     Route: 065
  9. FOSAMAX [Suspect]
     Active Substance: ALENDRONATE SODIUM
     Indication: OSTEOPOROSIS
     Dosage: 70 MG, QW
     Route: 048
     Dates: start: 200205, end: 200911

REACTIONS (26)
  - Emotional distress [Unknown]
  - Foot fracture [Unknown]
  - Hypothyroidism [Unknown]
  - Ankle fracture [Recovered/Resolved]
  - Complication associated with device [Unknown]
  - Foot fracture [Unknown]
  - Elbow operation [Unknown]
  - Major depression [Unknown]
  - Impaired healing [Unknown]
  - Tibia fracture [Unknown]
  - Endodontic procedure [Unknown]
  - Basedow^s disease [Unknown]
  - Juvenile idiopathic arthritis [Unknown]
  - Femur fracture [Unknown]
  - Knee arthroplasty [Unknown]
  - Foot fracture [Unknown]
  - Anxiety [Unknown]
  - Hip arthroplasty [Unknown]
  - Haemoglobin decreased [Unknown]
  - Fall [Recovered/Resolved]
  - Tibia fracture [Unknown]
  - Fibromyalgia [Unknown]
  - Bone pain [Unknown]
  - Obesity [Unknown]
  - Radiotherapy [Unknown]
  - Femur fracture [Unknown]

NARRATIVE: CASE EVENT DATE: 199505
